FAERS Safety Report 8843064 (Version 2)
Quarter: 2012Q4

REPORT INFORMATION
  Report Type: 
  Country: US (occurrence: US)
  Receive Date: 20121016
  Receipt Date: 20121115
  Transmission Date: 20130627
  Serious: No
  Sender: FDA-Public Use
  Company Number: US-009507513-1210USA005176

PATIENT
  Age: 28 Year
  Sex: Female
  Weight: 99.77 kg

DRUGS (2)
  1. IMPLANON [Suspect]
     Indication: CONTRACEPTION
     Dosage: every 3 years
     Route: 059
     Dates: start: 20120802
  2. IBUPROFEN [Concomitant]

REACTIONS (5)
  - Alopecia [Unknown]
  - Metrorrhagia [Unknown]
  - Hypoaesthesia [Unknown]
  - Pain in extremity [Not Recovered/Not Resolved]
  - Musculoskeletal pain [Not Recovered/Not Resolved]
